FAERS Safety Report 26070107 (Version 1)
Quarter: 2025Q4

REPORT INFORMATION
  Report Type: Spontaneous
  Country: US (occurrence: None)
  Receive Date: 20251119
  Receipt Date: 20251119
  Transmission Date: 20260118
  Serious: Yes (Hospitalization)
  Sender: FDA-CTU
  Company Number: None

PATIENT
  Age: 16 Year
  Sex: Male
  Weight: 61 kg

DRUGS (3)
  1. ISOTRETINOIN [Suspect]
     Active Substance: ISOTRETINOIN
     Indication: Acne cystic
     Dosage: FREQUENCY : DAILY;?
     Route: 048
     Dates: start: 20250111, end: 20251110
  2. ISOTRETINOIN [Suspect]
     Active Substance: ISOTRETINOIN
     Indication: Acne
  3. ISOTRETINOIN [Suspect]
     Active Substance: ISOTRETINOIN
     Indication: Scar

REACTIONS (5)
  - Mood altered [None]
  - Adjustment disorder [None]
  - Depressed mood [None]
  - Suicide attempt [None]
  - Road traffic accident [None]

NARRATIVE: CASE EVENT DATE: 20251110
